FAERS Safety Report 9503649 (Version 1)
Quarter: 2013Q1

REPORT INFORMATION
  Report Type: Spontaneous
  Country: US (occurrence: None)
  Receive Date: 20130107
  Receipt Date: 20130107
  Transmission Date: 20140127
  Serious: No
  Sender: FDA-Public Use
  Company Number: PHEH2012US020306

PATIENT
  Age: 54 Year
  Sex: Female

DRUGS (1)
  1. GILENYA [Suspect]
     Indication: MULTIPLE SCLEROSIS
     Route: 048
     Dates: start: 20110504

REACTIONS (7)
  - Fatigue [None]
  - Cough [None]
  - Multiple sclerosis relapse [None]
  - Incontinence [None]
  - Vision blurred [None]
  - Depression [None]
  - Inappropriate schedule of drug administration [None]
